FAERS Safety Report 17175086 (Version 1)
Quarter: 2019Q4

REPORT INFORMATION
  Report Type: Spontaneous
  Country: US (occurrence: US)
  Receive Date: 20191218
  Receipt Date: 20191218
  Transmission Date: 20200122
  Serious: Yes (Other)
  Sender: FDA-Public Use
  Company Number: None

PATIENT
  Age: 43 Year
  Sex: Female
  Weight: 72.9 kg

DRUGS (3)
  1. KYLEENA [Suspect]
     Active Substance: LEVONORGESTREL
     Indication: CONTRACEPTION
     Dosage: ?          QUANTITY:1 IUD;?
     Dates: start: 20190823, end: 20191218
  2. LEXAPRO 10 MG DAILY [Concomitant]
  3. KYLEENA [Concomitant]
     Active Substance: LEVONORGESTREL

REACTIONS (1)
  - Rash [None]

NARRATIVE: CASE EVENT DATE: 20191126
